FAERS Safety Report 7853693-0 (Version None)
Quarter: 2011Q4

REPORT INFORMATION
  Report Type: 
  Country: None (occurrence: None)
  Receive Date: 20111026
  Receipt Date: 20111013
  Transmission Date: 20120403
  Serious: Yes (Hospitalization, Other)
  Sender: FDA-Public Use
  Company Number: US-BAYER-2010-004715

PATIENT
  Age: 27 Year
  Sex: Female
  Weight: 90.703 kg

DRUGS (27)
  1. HYDROCODONE BITARTRATE AND ACETAMINOPHEN [Concomitant]
     Dosage: 5 MG, UNK
     Dates: start: 20070131, end: 20070509
  2. ERY-TAB [Concomitant]
     Dosage: UNK
     Dates: start: 20070319
  3. NAPROXEN [Concomitant]
     Dosage: UNK
     Dates: start: 20070704
  4. LEXAPRO [Concomitant]
     Dosage: UNK
     Dates: start: 20070706
  5. ADVAIR DISKUS 100/50 [Concomitant]
     Dosage: UNK
     Dates: start: 20070821
  6. OXYMETAZOLINE HCL [Concomitant]
     Dosage: UNK
     Route: 045
     Dates: start: 20070821
  7. ACETAMINOPHEN W/ CODEINE [Concomitant]
     Dosage: UNK
     Dates: start: 20070205, end: 20070405
  8. FERROUS SULFATE TAB [Concomitant]
     Dosage: 5 G, UNK
     Dates: start: 20070209
  9. ERY-TAB [Concomitant]
     Dosage: UNK
     Dates: start: 20070314
  10. TRAMADOL HCL [Concomitant]
     Dosage: 50 MG, UNK
     Dates: start: 20070706
  11. YASMIN [Suspect]
     Indication: CONTRACEPTION
     Dosage: UNK
     Dates: start: 20070301, end: 20070508
  12. DOCUSATE SODIUM [Concomitant]
     Dosage: UNK
     Dates: start: 20070115, end: 20070209
  13. GUAIFENESIN LA [Concomitant]
     Dosage: UNK
     Dates: start: 20070821
  14. YASMIN [Suspect]
     Indication: PREMENSTRUAL SYNDROME
  15. RANITIDINE [Concomitant]
     Dosage: 150 MG, UNK
     Dates: start: 20070125, end: 20070326
  16. CLINDAMYCIN [Concomitant]
     Dosage: UNK
     Dates: start: 20070131, end: 20070205
  17. LEXAPRO [Concomitant]
     Dosage: UNK
     Dates: start: 20070326
  18. LORATADINE [Concomitant]
     Dosage: 10 MG, UNK
     Dates: start: 20070821
  19. YASMIN [Suspect]
  20. ERY-TAB [Concomitant]
     Dosage: UNK
     Dates: start: 20070509
  21. NAPROXEN [Concomitant]
     Dosage: UNK
     Dates: start: 20070402
  22. LEXAPRO [Concomitant]
     Dosage: UNK
     Dates: start: 20070723
  23. EFFEXOR XR [Concomitant]
     Dosage: UNK
     Dates: start: 20070801, end: 20090201
  24. PRENATAL PLUS TAB [Concomitant]
     Dosage: UNK
     Dates: start: 20070209
  25. ALBUTEROL [Concomitant]
     Dosage: UNK
     Dates: start: 20070821
  26. AVELOX [Concomitant]
     Dosage: UNK
     Dates: start: 20070402
  27. NAPROXEN [Concomitant]
     Dosage: UNK
     Dates: start: 20070508

REACTIONS (6)
  - CHOLECYSTITIS ACUTE [None]
  - EMOTIONAL DISTRESS [None]
  - INJURY [None]
  - PAIN [None]
  - GALLBLADDER DISORDER [None]
  - ANXIETY [None]
